FAERS Safety Report 25252787 (Version 2)
Quarter: 2025Q2

REPORT INFORMATION
  Report Type: Spontaneous
  Country: FR (occurrence: FR)
  Receive Date: 20250429
  Receipt Date: 20250514
  Transmission Date: 20250717
  Serious: Yes (Death)
  Sender: MERCK SHARP & DOHME LLC
  Company Number: None

PATIENT
  Age: 63 Year
  Sex: Male
  Weight: 86 kg

DRUGS (11)
  1. KEYTRUDA [Suspect]
     Active Substance: PEMBROLIZUMAB
     Indication: Malignant melanoma
     Route: 042
     Dates: start: 20250210, end: 20250210
  2. ZYMAD 80,000 IU, oral solution in ampoule [Concomitant]
  3. FERROUS SULFATE [Concomitant]
     Active Substance: FERROUS SULFATE
  4. LANSOPRAZOLE ABBOTT 30 mg, gastro-resistant capsule [Concomitant]
  5. FUROSEMIDE [Concomitant]
     Active Substance: FUROSEMIDE
  6. ENTRESTO 49 mg/51 mg, film-coated tablet [Concomitant]
  7. SPIRONOLACTONE ACTAVIS 25 mg, film-coated tablet, scored [Concomitant]
  8. PREDNISONE ALMUS 5 mg, scored tablet [Concomitant]
  9. ALFUZOSIN [Concomitant]
     Active Substance: ALFUZOSIN
  10. CARVEDILOL ARROW 25 mg, film-coated tablet, scored [Concomitant]
  11. OROCAL 500 mg, tablet [Concomitant]

REACTIONS (2)
  - Muscular weakness [Fatal]
  - Myositis [Fatal]

NARRATIVE: CASE EVENT DATE: 20250311
